FAERS Safety Report 6632737-8 (Version None)
Quarter: 2010Q1

REPORT INFORMATION
  Report Type: 
  Country: None (occurrence: None)
  Receive Date: 20100312
  Receipt Date: 20100301
  Transmission Date: 20100710
  Serious: Yes (Hospitalization)
  Sender: FDA-Public Use
  Company Number: US-ELI_LILLY_AND_COMPANY-US201003001624

PATIENT
  Sex: Female

DRUGS (3)
  1. FORTEO [Suspect]
     Indication: OSTEOPOROSIS
     Dosage: 20 U, DAILY (1/D)
     Dates: start: 20090501
  2. ZEGERID [Concomitant]
     Indication: OESOPHAGEAL DISORDER
  3. LEVAQUIN [Concomitant]
     Indication: URINARY TRACT INFECTION

REACTIONS (3)
  - OESOPHAGEAL STENOSIS [None]
  - PARKINSON'S DISEASE [None]
  - URINARY TRACT INFECTION [None]
